FAERS Safety Report 9989741 (Version 1)
Quarter: 2014Q1

REPORT INFORMATION
  Report Type: Report from Study
  Country: US (occurrence: US)
  Receive Date: 20140310
  Receipt Date: 20140310
  Transmission Date: 20141002
  Serious: No
  Sender: FDA-Public Use
  Company Number: US-ABBVIE-13P-163-1130862-00

PATIENT
  Age: 49 Year
  Sex: Female

DRUGS (6)
  1. HUMIRA [Suspect]
     Indication: CROHN^S DISEASE
     Dates: start: 201210, end: 20130719
  2. HUMIRA [Suspect]
     Dates: start: 20130719
  3. COLESTID [Concomitant]
     Indication: DIARRHOEA
  4. ENTOCORT [Concomitant]
     Indication: PRODUCT USED FOR UNKNOWN INDICATION
     Dosage: IN THE MORNING
  5. TRAZODONE [Concomitant]
     Indication: INSOMNIA
     Dosage: AT BEDTIME
  6. XANAX [Concomitant]
     Indication: ANXIETY

REACTIONS (2)
  - Crohn^s disease [Recovering/Resolving]
  - Nausea [Recovering/Resolving]
